FAERS Safety Report 15154925 (Version 1)
Quarter: 2018Q3

REPORT INFORMATION
  Report Type: Report from Study
  Country: None (occurrence: US)
  Receive Date: 20180717
  Receipt Date: 20180717
  Transmission Date: 20181010
  Serious: Yes (Other)
  Sender: FDA-Public Use
  Company Number: US-ABBVIE-18K-163-2421652-00

PATIENT
  Sex: Female
  Weight: 71.28 kg

DRUGS (1)
  1. HUMIRA [Suspect]
     Active Substance: ADALIMUMAB
     Indication: RHEUMATOID ARTHRITIS
     Route: 058
     Dates: start: 20180608, end: 2018

REACTIONS (3)
  - Lipoma [Unknown]
  - Rheumatoid arthritis [Unknown]
  - Eczema [Unknown]

NARRATIVE: CASE EVENT DATE: 2018
